FAERS Safety Report 13694044 (Version 1)
Quarter: 2017Q2

REPORT INFORMATION
  Report Type: Spontaneous
  Country: US (occurrence: US)
  Receive Date: 20170627
  Receipt Date: 20170627
  Transmission Date: 20170830
  Serious: Yes (Disabling)
  Sender: FDA-Public Use
  Company Number: None

PATIENT
  Age: 77 Year
  Sex: Female
  Weight: 80.74 kg

DRUGS (20)
  1. GATHONG [Concomitant]
  2. SPRING VALLEY BIOTIN [Concomitant]
  3. SPRING VALLEY CALCIUM [Concomitant]
  4. METFORMIN [Concomitant]
     Active Substance: METFORMIN HYDROCHLORIDE
  5. ACETAMINOPHEN-COD [Concomitant]
     Active Substance: ACETAMINOPHEN\CODEINE PHOSPHATE
  6. NATURE^S MEASURE VITAMIN D [Concomitant]
  7. NATURE^S MEASURE VITAMIN E [Concomitant]
  8. RECLAST [Suspect]
     Active Substance: ZOLEDRONIC ACID
     Indication: OSTEOPENIA
     Dosage: DOSE - INJECTION FOR 25-60 MINUTES?FREQUENCY - ONCE PER YEAR?ROUTE - INJECTED -(AT HOSPITAL OUT-PATIENT DEPT.)
     Dates: start: 20160302, end: 20170309
  9. SPRING VALLEY VITAMIN B COMPLEX [Concomitant]
  10. ALL VITAMINS AND MINERALS [Concomitant]
  11. RISHI TEA [Concomitant]
  12. EQUATE COMPLETE MULTIVITAMINS [Concomitant]
  13. ROSUVASTIN CALCIUM [Concomitant]
  14. ASPIRIN. [Concomitant]
     Active Substance: ASPIRIN
  15. GYMNEMA TEA [Concomitant]
  16. NATURE^S MEASURE VITAMIN C [Concomitant]
  17. ANTACID (CALCIUM CARBONATE) [Concomitant]
     Active Substance: CALCIUM CARBONATE
  18. LEVEMIR (INSULIN) [Concomitant]
  19. LISINOPRIL. [Concomitant]
     Active Substance: LISINOPRIL
  20. MAGNESIUM + ZINC PLUS VITAMIN D3 [Concomitant]

REACTIONS (5)
  - Bone pain [None]
  - Blood blister [None]
  - Tendon pain [None]
  - Arthralgia [None]
  - Contusion [None]

NARRATIVE: CASE EVENT DATE: 20170516
